FAERS Safety Report 23735606 (Version 1)
Quarter: 2024Q2

REPORT INFORMATION
  Report Type: Spontaneous
  Country: US (occurrence: US)
  Receive Date: 20240412
  Receipt Date: 20240412
  Transmission Date: 20240716
  Serious: No
  Sender: FDA-Public Use
  Company Number: US-HALEON-2167061

PATIENT

DRUGS (1)
  1. ABREVA [Suspect]
     Active Substance: DOCOSANOL
     Indication: Product used for unknown indication
     Dosage: EXPDATE:20250630 I USE IT 5 TO 10 TIMES PER DAY

REACTIONS (1)
  - Inappropriate schedule of product administration [Unknown]
